FAERS Safety Report 9391434 (Version 1)
Quarter: 2013Q3

REPORT INFORMATION
  Report Type: Spontaneous
  Country: JP (occurrence: JP)
  Receive Date: 20130709
  Receipt Date: 20130709
  Transmission Date: 20140515
  Serious: Yes (Other)
  Sender: FDA-Public Use
  Company Number: JP-PFIZER INC-2013150863

PATIENT
  Age: 62 Year
  Sex: Male
  Weight: 49 kg

DRUGS (15)
  1. CELECOX [Suspect]
     Indication: CANCER PAIN
     Dosage: 100 MG, 2X/DAY
     Route: 048
     Dates: start: 20090707, end: 20091004
  2. LOXONIN [Suspect]
     Indication: COLON CANCER
     Dosage: 60 MG, 2X/DAY
     Route: 048
     Dates: start: 20081106, end: 20090705
  3. LOXONIN [Suspect]
     Indication: METASTASES TO LIVER
  4. LOXONIN [Suspect]
     Indication: CANCER PAIN
  5. VOLTAREN [Suspect]
     Indication: CANCER PAIN
     Dosage: 25 MG, 1X/DAY
     Dates: start: 20090309, end: 20090511
  6. THIATON [Concomitant]
     Indication: CANCER PAIN
     Dosage: 60 MG, 2X/DAY
     Route: 048
     Dates: start: 20081208, end: 20090705
  7. THIATON [Concomitant]
     Indication: ABDOMINAL PAIN
  8. MYSLEE [Concomitant]
     Indication: INSOMNIA
     Dosage: UNK
     Dates: start: 20081112, end: 20090721
  9. PROMAC /JPN/ [Concomitant]
     Indication: GASTRITIS
     Dosage: UNK
     Dates: start: 20081121, end: 20091004
  10. ROHYPNOL [Concomitant]
     Indication: INSOMNIA
     Dosage: UNK
     Dates: start: 20081206, end: 20090721
  11. BUP-4 [Concomitant]
     Indication: POLLAKIURIA
     Dosage: UNK
     Dates: start: 20090209, end: 20091004
  12. HALCION [Concomitant]
     Indication: INSOMNIA
     Dosage: UNK
     Dates: start: 20090209, end: 20090718
  13. ATELEC [Concomitant]
     Indication: HYPERTENSION
     Dosage: UNK
     Dates: start: 20090214, end: 20091004
  14. GASMOTIN [Concomitant]
     Indication: GASTROOESOPHAGEAL REFLUX DISEASE
     Dosage: UNK
     Dates: start: 20090706, end: 20091004
  15. CERCINE [Concomitant]
     Indication: HICCUPS
     Dosage: 2 MG, AS NEEDED
     Dates: start: 20090815, end: 20090825

REACTIONS (3)
  - Off label use [Unknown]
  - Gastrooesophageal reflux disease [Unknown]
  - Oesophageal disorder [Not Recovered/Not Resolved]
